FAERS Safety Report 6656571-8 (Version None)
Quarter: 2010Q1

REPORT INFORMATION
  Report Type: 
  Country: None (occurrence: None)
  Receive Date: 20100329
  Receipt Date: 20100319
  Transmission Date: 20100710
  Serious: Yes (Other)
  Sender: FDA-Public Use
  Company Number: CHPA2010JP05519

PATIENT
  Age: 73 Year
  Sex: Female

DRUGS (1)
  1. GLYSENNID [Suspect]
     Dosage: UNK,UNK
     Route: 048

REACTIONS (1)
  - LUNG DISORDER [None]
